FAERS Safety Report 22308662 (Version 1)
Quarter: 2023Q2

REPORT INFORMATION
  Report Type: Spontaneous
  Country: US (occurrence: None)
  Receive Date: 20230511
  Receipt Date: 20230511
  Transmission Date: 20230721
  Serious: No
  Sender: FDA-Public Use
  Company Number: US-ROCHE-3273595

PATIENT
  Sex: Male

DRUGS (1)
  1. OCREVUS [Suspect]
     Active Substance: OCRELIZUMAB
     Indication: Relapsing-remitting multiple sclerosis
     Dosage: LAST INFUSION WAS ON 17/JAN/2023.
     Route: 065
     Dates: start: 20230103

REACTIONS (2)
  - Vertigo [Not Recovered/Not Resolved]
  - Migraine [Not Recovered/Not Resolved]
